FAERS Safety Report 13409977 (Version 1)
Quarter: 2017Q2

REPORT INFORMATION
  Report Type: Spontaneous
  Country: US (occurrence: US)
  Receive Date: 20170406
  Receipt Date: 20170406
  Transmission Date: 20170830
  Serious: Yes (Other)
  Sender: FDA-Public Use
  Company Number: US-PFIZER INC-2017143291

PATIENT
  Age: 47 Year
  Sex: Male
  Weight: 80 kg

DRUGS (6)
  1. FENTANYL CITRATE. [Suspect]
     Active Substance: FENTANYL CITRATE
     Indication: ANAESTHESIA
     Dosage: 2500 UG, UNK
     Route: 041
  2. PROPRANOLOL [Concomitant]
     Active Substance: PROPRANOLOL HYDROCHLORIDE
     Indication: ANGINA PECTORIS
     Dosage: 60 MG, EVERY 6 HOURS
  3. FENTANYL CITRATE. [Suspect]
     Active Substance: FENTANYL CITRATE
     Dosage: 1500 UG, (FENTANYL WAS RAPIDLY INJECTED INTO OVER A PERIOD OF 20 SECONDS)
     Route: 041
  4. LORAZEPAM. [Concomitant]
     Active Substance: LORAZEPAM
     Indication: PREMEDICATION
     Dosage: 2 MG, UNK
     Route: 042
  5. MORPHINE SULFATE. [Concomitant]
     Active Substance: MORPHINE SULFATE
     Indication: PREMEDICATION
     Dosage: 10 MG, UNK
     Route: 030
  6. DIAZEPAM. [Concomitant]
     Active Substance: DIAZEPAM
     Indication: PREMEDICATION
     Dosage: 10 MG, UNK
     Route: 048

REACTIONS (1)
  - Seizure [Unknown]
